FAERS Safety Report 7436726-5 (Version None)
Quarter: 2011Q2

REPORT INFORMATION
  Report Type: 
  Country: None (occurrence: None)
  Receive Date: 20110426
  Receipt Date: 20110413
  Transmission Date: 20111010
  Serious: Yes (Hospitalization, Other)
  Sender: FDA-Public Use
  Company Number: CA-ELI_LILLY_AND_COMPANY-CA201104004558

PATIENT
  Age: 16 Year
  Sex: Male

DRUGS (3)
  1. CYMBALTA [Suspect]
     Indication: MAJOR DEPRESSION
     Dosage: 30 MG, QD
     Dates: start: 20110309
  2. CYMBALTA [Suspect]
     Dosage: 60 MG, QD
     Dates: start: 20110316
  3. CITALOPRAM [Concomitant]

REACTIONS (5)
  - THROAT TIGHTNESS [None]
  - OFF LABEL USE [None]
  - SEROTONIN SYNDROME [None]
  - DYSPHAGIA [None]
  - SUICIDAL IDEATION [None]
